FAERS Safety Report 24220269 (Version 1)
Quarter: 2024Q3

REPORT INFORMATION
  Report Type: Spontaneous
  Country: NL (occurrence: FR)
  Receive Date: 20240817
  Receipt Date: 20240817
  Transmission Date: 20241016
  Serious: Yes (Hospitalization)
  Sender: AMGEN
  Company Number: NL-AMGEN-FRASP2024161600

PATIENT
  Age: 74 Year
  Sex: Female

DRUGS (2)
  1. PROLIA [Suspect]
     Active Substance: DENOSUMAB
     Indication: Osteoporosis postmenopausal
     Dosage: UNK, Q6MO
     Route: 065
     Dates: start: 201901
  2. LEVOTHYROXINE [Concomitant]
     Active Substance: LEVOTHYROXINE\LEVOTHYROXINE SODIUM
     Indication: Thyroid disorder

REACTIONS (3)
  - Diarrhoea [Unknown]
  - Dehydration [Unknown]
  - Abdominal pain [Unknown]
